FAERS Safety Report 17238216 (Version 2)
Quarter: 2020Q1

REPORT INFORMATION
  Report Type: Report from Study
  Country: HU (occurrence: HU)
  Receive Date: 20200106
  Receipt Date: 20200318
  Transmission Date: 20200409
  Serious: Yes (Hospitalization, Other)
  Sender: FDA-Public Use
  Company Number: NVSC2019HU085552

PATIENT
  Age: 71 Year
  Sex: Female

DRUGS (1)
  1. COSENTYX [Suspect]
     Active Substance: SECUKINUMAB
     Indication: ANKYLOSING SPONDYLITIS
     Dosage: UNK, QMO
     Route: 058
     Dates: start: 20190805

REACTIONS (11)
  - Addison^s disease [Unknown]
  - Osteoarthritis [Unknown]
  - Arthralgia [Unknown]
  - Balance disorder [Unknown]
  - Movement disorder [Unknown]
  - Osteoporosis [Unknown]
  - Malaise [Unknown]
  - Knee deformity [Unknown]
  - Chondropathy [Unknown]
  - Fall [Unknown]
  - Face injury [Unknown]

NARRATIVE: CASE EVENT DATE: 202001
